FAERS Safety Report 6107842-5 (Version None)
Quarter: 2009Q1

REPORT INFORMATION
  Report Type: 
  Country: None (occurrence: None)
  Receive Date: 20090309
  Receipt Date: 20090220
  Transmission Date: 20090719
  Serious: Yes (Other)
  Sender: FDA-Public Use
  Company Number: US-BAYER-200840615NA

PATIENT
  Sex: Female
  Weight: 65 kg

DRUGS (43)
  1. MAGNEVIST [Suspect]
     Indication: NUCLEAR MAGNETIC RESONANCE IMAGING
  2. OMNISCAN [Suspect]
     Indication: NUCLEAR MAGNETIC RESONANCE IMAGING
  3. OPTIMARK [Suspect]
     Indication: NUCLEAR MAGNETIC RESONANCE IMAGING
  4. OXYGEN [Concomitant]
  5. MORPHINE SULFATE [Concomitant]
  6. IPRATROPIUM BROMIDE [Concomitant]
     Route: 055
  7. TEMAZEPAM [Concomitant]
  8. AMLODIPINE [Concomitant]
     Dosage: TOTAL DAILY DOSE: 1 MG
     Route: 048
  9. ATORVASTATIN [Concomitant]
     Dosage: TOTAL DAILY DOSE: 10 MG
     Route: 048
  10. SENSIPAR [Concomitant]
     Dosage: TOTAL DAILY DOSE: 90 MG
     Route: 048
  11. DOXAZOSIN MESYLATE [Concomitant]
  12. ENOXAPARIN SODIUM [Concomitant]
  13. COZAAR [Concomitant]
  14. PROTONIX [Concomitant]
     Dosage: TOTAL DAILY DOSE: 40 MG
     Route: 048
  15. MUCOMYST [Concomitant]
     Route: 055
  16. RENAGEL [Concomitant]
     Dosage: TOTAL DAILY DOSE: 9600 MG
     Route: 048
     Dates: start: 20060901
  17. ACETAMINOPHEN [Concomitant]
     Route: 048
  18. ACETAMINOPHEN W/ CODEINE [Concomitant]
     Route: 048
  19. ALBUMIN (HUMAN) [Concomitant]
  20. MANNITOL [Concomitant]
  21. ALPRAZOLAM [Concomitant]
     Dosage: TOTAL DAILY DOSE: 1 MG
     Route: 048
  22. BISACODYL [Concomitant]
     Route: 054
  23. INSULIN HUMAN REGULAR [Concomitant]
     Route: 058
  24. TEMAZEPAM [Concomitant]
  25. ARANESP [Concomitant]
     Route: 058
  26. METOPROLOL [Concomitant]
     Dosage: TOTAL DAILY DOSE: 50 MG  UNIT DOSE: 25 MG
     Route: 048
  27. COUMADIN [Concomitant]
  28. NEPHROVITE [Concomitant]
     Route: 048
  29. CARISOPRODOL [Concomitant]
  30. CALCIUM CARBONATE [Concomitant]
     Route: 048
  31. LIPITOR [Concomitant]
     Dosage: TOTAL DAILY DOSE: 10 MG
     Route: 048
  32. ALBUTEROL [Concomitant]
     Route: 055
     Dates: start: 20060928
  33. PHENERGAN [Concomitant]
     Route: 054
  34. GLIPIZIDE [Concomitant]
  35. CATAPRES [Concomitant]
  36. VICODIN [Concomitant]
  37. EPOGEN [Concomitant]
     Route: 042
     Dates: start: 20031108
  38. EPOGEN [Concomitant]
     Route: 058
     Dates: start: 20010821
  39. ZEMPLAR [Concomitant]
     Dosage: TOTAL DAILY DOSE: 11 ?G
     Route: 042
     Dates: start: 20031108
  40. FERRLECIT [Concomitant]
     Route: 042
     Dates: start: 20031108
  41. PHOSLO [Concomitant]
     Dosage: TOTAL DAILY DOSE: 6003 MG  UNIT DOSE: 667 MG
     Route: 048
     Dates: start: 20031108
  42. INFED [Concomitant]
     Route: 042
     Dates: start: 20010801
  43. NEURONTIN [Concomitant]
     Dosage: TOTAL DAILY DOSE: 100 MG
     Route: 048
     Dates: start: 20010801

REACTIONS (16)
  - ANXIETY [None]
  - DEFORMITY [None]
  - DRY SKIN [None]
  - EMOTIONAL DISTRESS [None]
  - FIBROSIS [None]
  - GENERAL PHYSICAL HEALTH DETERIORATION [None]
  - LIVEDO RETICULARIS [None]
  - MOBILITY DECREASED [None]
  - NEPHROGENIC SYSTEMIC FIBROSIS [None]
  - PAIN [None]
  - PITTING OEDEMA [None]
  - PRURITUS [None]
  - SCAR [None]
  - SKIN DISCOLOURATION [None]
  - SKIN HYPERPIGMENTATION [None]
  - SKIN TURGOR DECREASED [None]
